FAERS Safety Report 9548305 (Version 1)
Quarter: 2013Q2

REPORT INFORMATION
  Report Type: Spontaneous
  Country: US (occurrence: None)
  Receive Date: 20130627
  Receipt Date: 20130627
  Transmission Date: 20140414
  Serious: No
  Sender: FDA-Public Use
  Company Number: 1000043531

PATIENT
  Age: 78 Year
  Sex: Male

DRUGS (6)
  1. LINZESS ( LINACLOTIDE) ( 145 MICROGRAM, CAPSULES) [Suspect]
     Route: 048
     Dates: start: 20130307, end: 20130311
  2. ATORVASTATIN (ATORVASTATIN) (ATORVASTATIN) [Concomitant]
  3. GUANFACINE (GUANFACINE) (GUANFACINE) [Concomitant]
  4. CARTIA-XT (DILTIAZEM) (DILTIAZEM) [Concomitant]
  5. ASPIRIN (ACETYLSALICYLIC ACID) (ACETYLSALICYLIC ACID) [Concomitant]
  6. ADVAIR (SERETIDE) (SERETIDE) [Concomitant]

REACTIONS (1)
  - Drug ineffective [None]
